FAERS Safety Report 16071425 (Version 1)
Quarter: 2019Q1

REPORT INFORMATION
  Report Type: Spontaneous
  Country: US (occurrence: US)
  Receive Date: 20190314
  Receipt Date: 20190314
  Transmission Date: 20190418
  Serious: No
  Sender: FDA-Public Use
  Company Number: US-PFIZER INC-2019107304

PATIENT
  Age: 82 Year
  Sex: Female
  Weight: 58.97 kg

DRUGS (2)
  1. NATURE-THROID [Concomitant]
     Active Substance: THYROID, PORCINE
     Indication: HYPOTHYROIDISM
     Dosage: 15 MG, 1X/DAY
     Route: 048
  2. ADVIL LIQUI-GELS [Suspect]
     Active Substance: IBUPROFEN
     Indication: PAIN
     Dosage: UNK, (2 EVERY 6 HOURS; FROM TIME SHE WOKE UP AND FROM TIME SHE WENT TO BED)
     Dates: start: 20190302

REACTIONS (2)
  - Weight increased [Unknown]
  - Dizziness [Not Recovered/Not Resolved]

NARRATIVE: CASE EVENT DATE: 20190305
